FAERS Safety Report 10090651 (Version 2)
Quarter: 2014Q2

REPORT INFORMATION
  Report Type: Spontaneous
  Country: US (occurrence: US)
  Receive Date: 20140421
  Receipt Date: 20140509
  Transmission Date: 20141212
  Serious: Yes (Other)
  Sender: FDA-Public Use
  Company Number: US-UCBSA-118365

PATIENT
  Sex: Male
  Weight: 83.9 kg

DRUGS (6)
  1. KEPPRA [Suspect]
     Indication: CONVULSION
  2. KEPPRA [Suspect]
     Indication: CONVULSION
     Dosage: 1 TEA SPOON
     Dates: start: 201209
  3. LISINOPRIL [Concomitant]
  4. CARBETALOL [Concomitant]
  5. HCTZ [Concomitant]
  6. ASA [Concomitant]

REACTIONS (3)
  - Paralysis [Not Recovered/Not Resolved]
  - Cerebrovascular accident [Not Recovered/Not Resolved]
  - Convulsion [Recovered/Resolved]
